FAERS Safety Report 19507893 (Version 1)
Quarter: 2021Q3

REPORT INFORMATION
  Report Type: Spontaneous
  Country: US (occurrence: US)
  Receive Date: 20210708
  Receipt Date: 20210708
  Transmission Date: 20211014
  Serious: Yes (Hospitalization)
  Sender: FDA-Public Use
  Company Number: US-SLATE RUN PHARMACEUTICALS-21US000566

PATIENT

DRUGS (1)
  1. AZITHROMYCIN USP [Suspect]
     Active Substance: AZITHROMYCIN
     Indication: PNEUMONIA
     Dosage: UNK

REACTIONS (3)
  - Drug ineffective [Unknown]
  - Foreign body aspiration [Recovered/Resolved]
  - Pneumonia [Recovered/Resolved]
